FAERS Safety Report 8685463 (Version 4)
Quarter: 2012Q4

REPORT INFORMATION
  Report Type: Report from Study
  Country: ES (occurrence: ES)
  Receive Date: 20120726
  Receipt Date: 20121130
  Transmission Date: 20130627
  Serious: Yes (Other)
  Sender: FDA-Public Use
  Company Number: ES-PFIZER INC-2012174587

PATIENT
  Age: 57 Year
  Sex: Male
  Weight: 115 kg

DRUGS (4)
  1. CELEBREX [Suspect]
     Indication: KNEE OSTEOARTHRITIS
     Dosage: 200 mg (six capsules) per day
     Route: 048
     Dates: start: 20120306, end: 20120625
  2. ENALAPRIL [Concomitant]
     Indication: HYPERTENSION
     Dosage: 20 mg, 1x/day
     Route: 048
     Dates: start: 20100715
  3. METFORMIN [Concomitant]
     Indication: DIABETES
     Dosage: 850 mg, 1x/day
     Route: 048
     Dates: start: 20090210
  4. SIMVASTATIN [Concomitant]
     Indication: DYSLIPIDEMIA
     Dosage: 10 mg, 1x/day
     Route: 048
     Dates: start: 20100715

REACTIONS (1)
  - Dermatitis psoriasiform [Recovered/Resolved with Sequelae]
